FAERS Safety Report 23222470 (Version 2)
Quarter: 2023Q4

REPORT INFORMATION
  Report Type: Report from Study
  Country: DE (occurrence: DE)
  Receive Date: 20231123
  Receipt Date: 20231129
  Transmission Date: 20240109
  Serious: Yes (Other)
  Sender: FDA-Public Use
  Company Number: DE-BoehringerIngelheim-2023-BI-272570

PATIENT
  Age: 39 Year
  Sex: Male
  Weight: 93.7 kg

DRUGS (2)
  1. SPESOLIMAB [Suspect]
     Active Substance: SPESOLIMAB
     Indication: Hidradenitis
     Route: 042
     Dates: start: 20230919, end: 20231011
  2. SPESOLIMAB [Suspect]
     Active Substance: SPESOLIMAB
     Route: 058
     Dates: start: 20231018, end: 20231102

REACTIONS (1)
  - Hepatic enzyme increased [Not Recovered/Not Resolved]

NARRATIVE: CASE EVENT DATE: 20231110
